FAERS Safety Report 6368329-8 (Version None)
Quarter: 2009Q3

REPORT INFORMATION
  Report Type: 
  Country: None (occurrence: None)
  Receive Date: 20090909
  Receipt Date: 20090521
  Transmission Date: 20100115
  Serious: No
  Sender: FDA-Public Use
  Company Number: 000893

PATIENT
  Sex: Female
  Weight: 72.7 kg

DRUGS (5)
  1. ROTIGOTINE [Suspect]
     Indication: PARKINSON'S DISEASE
     Dosage: (6 MG QD TRANSDERMAL)
     Route: 062
     Dates: start: 20070601
  2. MIRAPEX [Concomitant]
  3. ACIPHEX [Concomitant]
  4. PREMPRO [Concomitant]
  5. AVALIDE [Concomitant]

REACTIONS (4)
  - APPLICATION SITE BURN [None]
  - APPLICATION SITE REACTION [None]
  - NAUSEA [None]
  - WEIGHT INCREASED [None]
